FAERS Safety Report 10259504 (Version 3)
Quarter: 2017Q2

REPORT INFORMATION
  Report Type: Spontaneous
  Country: US (occurrence: US)
  Receive Date: 20140625
  Receipt Date: 20170623
  Transmission Date: 20170829
  Serious: No
  Sender: FDA-Public Use
  Company Number: US-ASTELLAS-2014US003584

PATIENT
  Sex: Male

DRUGS (6)
  1. RAPAFLO [Suspect]
     Active Substance: SILODOSIN
     Indication: PRODUCT USED FOR UNKNOWN INDICATION
     Route: 048
     Dates: start: 201605
  2. VESICARE [Suspect]
     Active Substance: SOLIFENACIN SUCCINATE
     Indication: PRODUCT USED FOR UNKNOWN INDICATION
     Route: 048
     Dates: start: 201403, end: 20141207
  3. LUPRON DEPOT [Concomitant]
     Active Substance: LEUPROLIDE ACETATE
     Indication: PROSTATE CANCER
     Dosage: UNK UNK, OTHER (EVERY FOUR MONTHS)
     Route: 065
  4. VESICARE [Suspect]
     Active Substance: SOLIFENACIN SUCCINATE
     Route: 048
     Dates: start: 201602, end: 201604
  5. TOVIAZ [Concomitant]
     Active Substance: FESOTERODINE FUMARATE
     Indication: PRODUCT USED FOR UNKNOWN INDICATION
     Dosage: UNK UNK, UNKNOWN FREQ.
     Route: 065
  6. FLOMAX [Suspect]
     Active Substance: TAMSULOSIN HYDROCHLORIDE
     Indication: PRODUCT USED FOR UNKNOWN INDICATION
     Dosage: UNK UNK, UNKNOWN FREQ.
     Route: 065
     Dates: start: 2015, end: 201603

REACTIONS (12)
  - Urethral disorder [Unknown]
  - Nocturia [Unknown]
  - Abdominal pain upper [Unknown]
  - Insomnia [Unknown]
  - Rhinorrhoea [Unknown]
  - Dry throat [Unknown]
  - Hot flush [Unknown]
  - Blood pressure systolic increased [Unknown]
  - Depression [Unknown]
  - Prostatic specific antigen increased [Unknown]
  - Drug ineffective [Unknown]
  - Libido increased [Unknown]
